FAERS Safety Report 21398138 (Version 2)
Quarter: 2024Q3

REPORT INFORMATION
  Report Type: Spontaneous
  Country: US (occurrence: US)
  Receive Date: 20220930
  Receipt Date: 20240714
  Transmission Date: 20241016
  Serious: No
  Sender: SANOFI AVENTIS
  Company Number: US-SANOFI-01291895

PATIENT
  Sex: Male

DRUGS (2)
  1. LANTUS SOLOSTAR [Suspect]
     Active Substance: INSULIN GLARGINE
     Indication: Type 2 diabetes mellitus
     Dosage: 60 UNITS IN AM, 50 UNITS AT NIGHT BID AND DRUG TREATMENT DURATION:140 UNITS REMAINING IN PEN
  2. LANTUS SOLOSTAR [Suspect]
     Active Substance: INSULIN GLARGINE
     Dosage: 40-50 UNITS 1-2 TIMES A DAY, BID

REACTIONS (4)
  - Blood glucose increased [Unknown]
  - Intentional product misuse [Unknown]
  - Product administered at inappropriate site [Unknown]
  - Off label use [Unknown]
